FAERS Safety Report 20647530 (Version 3)
Quarter: 2022Q4

REPORT INFORMATION
  Report Type: Report from Study
  Country: US (occurrence: US)
  Receive Date: 20220329
  Receipt Date: 20221117
  Transmission Date: 20230113
  Serious: Yes (Other)
  Sender: FDA-Public Use
  Company Number: US-BRISTOL-MYERS SQUIBB COMPANY-2022-011438

PATIENT
  Age: 67 Year
  Sex: Female

DRUGS (1)
  1. ZEPOSIA [Suspect]
     Active Substance: OZANIMOD HYDROCHLORIDE
     Indication: Multiple sclerosis
     Route: 048
     Dates: start: 20210630

REACTIONS (8)
  - SARS-CoV-2 test positive [Unknown]
  - Burning sensation [Unknown]
  - Stress [Unknown]
  - Joint stiffness [Unknown]
  - Contusion [Unknown]
  - Peripheral swelling [Unknown]
  - Sensory disturbance [Unknown]
  - Blepharospasm [Unknown]

NARRATIVE: CASE EVENT DATE: 20220301
